FAERS Safety Report 20163605 (Version 1)
Quarter: 2021Q4

REPORT INFORMATION
  Report Type: Spontaneous
  Country: FR (occurrence: FR)
  Receive Date: 20211209
  Receipt Date: 20211209
  Transmission Date: 20220303
  Serious: Yes (Congenital Anomaly, Other)
  Sender: FDA-Public Use
  Company Number: FR-ABBVIE-21K-056-4189401-00

PATIENT

DRUGS (1)
  1. VALPROATE SODIUM [Suspect]
     Active Substance: VALPROATE SODIUM
     Indication: Product used for unknown indication
     Dosage: 2.5 DF
     Route: 064
     Dates: start: 199802, end: 19981124

REACTIONS (8)
  - Autism spectrum disorder [Unknown]
  - Foetal exposure during pregnancy [Unknown]
  - Developmental delay [Unknown]
  - Behaviour disorder [Unknown]
  - Attention deficit hyperactivity disorder [Unknown]
  - Gait disturbance [Unknown]
  - Language disorder [Unknown]
  - Language disorder [Unknown]

NARRATIVE: CASE EVENT DATE: 20000101
